FAERS Safety Report 9644093 (Version 4)
Quarter: 2014Q2

REPORT INFORMATION
  Report Type: Report from Study
  Country: GB (occurrence: GB)
  Receive Date: 20131024
  Receipt Date: 20140606
  Transmission Date: 20141212
  Serious: Yes (Hospitalization)
  Sender: FDA-Public Use
  Company Number: GB-ROCHE-1293657

PATIENT
  Age: 90 Year
  Sex: Female

DRUGS (4)
  1. RANIBIZUMAB [Suspect]
     Indication: AGE-RELATED MACULAR DEGENERATION
     Route: 050
     Dates: start: 20120615
  2. RANIBIZUMAB [Suspect]
     Route: 050
     Dates: start: 20130305
  3. RANIBIZUMAB [Suspect]
     Route: 050
     Dates: start: 20130509
  4. RANIBIZUMAB [Suspect]
     Route: 050
     Dates: start: 20130820

REACTIONS (5)
  - Urinary tract infection [Recovered/Resolved]
  - Confusional state [Recovering/Resolving]
  - Limb discomfort [Recovering/Resolving]
  - Cholelithiasis [Recovering/Resolving]
  - Dyskinesia [Recovering/Resolving]
